FAERS Safety Report 9107255 (Version 2)
Quarter: 2013Q3

REPORT INFORMATION
  Report Type: Spontaneous
  Country: US (occurrence: US)
  Receive Date: 20130221
  Receipt Date: 20130726
  Transmission Date: 20140515
  Serious: Yes (Hospitalization, Other)
  Sender: FDA-Public Use
  Company Number: US-RB-050134-13

PATIENT
  Age: 27 Year
  Sex: Male
  Weight: 140 kg

DRUGS (5)
  1. SUBOXONE FILM [Suspect]
     Indication: DRUG DEPENDENCE
     Dosage: SUBOXONE FILM
     Route: 060
     Dates: start: 2011, end: 2012
  2. SUBOXONE FILM [Suspect]
     Dosage: SUBOXONE FILM
     Route: 060
     Dates: start: 2012, end: 201304
  3. SUBOXONE FILM [Suspect]
     Dosage: SUBOXONE FILM; DOSE FURTHER REDUCED, BOTH 4 AND 2 DOSE STRENGTHS, VARIOUS DECREASING DOSES
     Route: 060
     Dates: start: 201304, end: 20130710
  4. ALCOHOL [Suspect]
     Indication: SUBSTANCE USE
     Dosage: DOSING DETAILS UNKNOWN; EXCESSIVE USE
     Route: 048
     Dates: start: 2012, end: 201301
  5. ALCOHOL [Suspect]
     Dosage: DOSING DETAILS UNKNOWN; NOT AS EXCESSIVELY AS BEFORE
     Route: 048
     Dates: start: 2013

REACTIONS (12)
  - Alcohol abuse [Recovered/Resolved]
  - Hypersomnia [Recovering/Resolving]
  - Depression [Recovered/Resolved]
  - Apathy [Unknown]
  - Wrong technique in drug usage process [Recovered/Resolved]
  - Suicidal ideation [Recovered/Resolved]
  - Drug withdrawal syndrome [Not Recovered/Not Resolved]
  - Tremor [Not Recovered/Not Resolved]
  - Diarrhoea [Recovering/Resolving]
  - Nausea [Recovering/Resolving]
  - Asthenia [Not Recovered/Not Resolved]
  - Alcohol abuse [Not Recovered/Not Resolved]
